FAERS Safety Report 16244331 (Version 2)
Quarter: 2019Q2

REPORT INFORMATION
  Report Type: Spontaneous
  Country: US (occurrence: US)
  Receive Date: 20190426
  Receipt Date: 20190621
  Transmission Date: 20190711
  Serious: No
  Sender: FDA-Public Use
  Company Number: US-ASTRAZENECA-2019SE50131

PATIENT
  Age: 74 Year
  Sex: Female
  Weight: 57.2 kg

DRUGS (1)
  1. SYMBICORT [Suspect]
     Active Substance: BUDESONIDE\FORMOTEROL FUMARATE DIHYDRATE
     Indication: DYSPNOEA
     Dosage: 160/4.5 MCG, TWO PUFFS IN THE MORNING AND TWO PUFFS AT NIGHT
     Route: 055
     Dates: start: 2006

REACTIONS (7)
  - Device failure [Unknown]
  - Wrong technique in device usage process [Unknown]
  - Off label use [Unknown]
  - Product use in unapproved indication [Unknown]
  - Visual acuity reduced [Unknown]
  - Intentional device misuse [Unknown]
  - Product packaging quantity issue [Unknown]

NARRATIVE: CASE EVENT DATE: 20190313
